FAERS Safety Report 9137916 (Version 1)
Quarter: 2013Q1

REPORT INFORMATION
  Report Type: Spontaneous
  Country: US (occurrence: US)
  Receive Date: 20130304
  Receipt Date: 20130304
  Transmission Date: 20140127
  Serious: No
  Sender: FDA-Public Use
  Company Number: US-B.I. PHARMACEUTICALS,INC./RIDGEFIELD-2013-BI-05171BP

PATIENT
  Age: 59 Year
  Sex: Male

DRUGS (3)
  1. PRADAXA [Suspect]
     Indication: ATRIAL FIBRILLATION
     Dosage: 300 MG
     Route: 048
     Dates: start: 20130102
  2. TIKOSYN [Concomitant]
     Dosage: 1000 MCG
  3. DILTIAZEM EXTENDED-RELEASE [Concomitant]
     Indication: HYPERTENSION
     Dosage: 120 MG

REACTIONS (2)
  - Activated partial thromboplastin time shortened [Unknown]
  - Coagulation time shortened [Not Recovered/Not Resolved]
